FAERS Safety Report 6856167-9 (Version None)
Quarter: 2010Q3

REPORT INFORMATION
  Report Type: 
  Country: None (occurrence: None)
  Receive Date: 20100719
  Receipt Date: 20100708
  Transmission Date: 20110219
  Serious: Yes (Hospitalization)
  Sender: FDA-Public Use
  Company Number: DE-JNJFOC-20100607123

PATIENT
  Sex: Female
  Weight: 79 kg

DRUGS (13)
  1. GOLIMUMAB [Suspect]
     Indication: RHEUMATOID ARTHRITIS
     Route: 058
  2. GOLIMUMAB [Suspect]
     Route: 058
  3. PLACEBO [Suspect]
     Indication: RHEUMATOID ARTHRITIS
     Route: 058
  4. INDOMETHACIN SODIUM [Concomitant]
     Route: 048
  5. METOHEXAL [Concomitant]
     Route: 048
  6. RAMIPRIL [Concomitant]
     Route: 048
  7. PREDNISOLON [Concomitant]
     Route: 048
  8. PANTOPRAZOLE [Concomitant]
     Route: 048
  9. DELIX [Concomitant]
     Route: 048
  10. RASILEZ [Concomitant]
     Route: 048
  11. AMLODIPINE [Concomitant]
     Route: 048
  12. CALCIUM CARBONATE [Concomitant]
     Route: 048
  13. FOSAVANCE [Concomitant]
     Route: 048

REACTIONS (1)
  - HAEMARTHROSIS [None]
